FAERS Safety Report 17044583 (Version 1)
Quarter: 2019Q4

REPORT INFORMATION
  Report Type: Spontaneous
  Country: US (occurrence: US)
  Receive Date: 20191118
  Receipt Date: 20191118
  Transmission Date: 20200122
  Serious: Yes (Hospitalization)
  Sender: FDA-Public Use
  Company Number: US-JUBILANT CADISTA PHARMACEUTICALS-2019JUB00427

PATIENT
  Age: 63 Year
  Sex: Female
  Weight: 59.4 kg

DRUGS (4)
  1. INCB039110 OR PLACEBO [Suspect]
     Active Substance: ITACITINIB
     Indication: ACUTE GRAFT VERSUS HOST DISEASE
     Dosage: 200 MG, 1X/DAY
     Route: 048
     Dates: start: 20190208, end: 20190210
  2. INCB039110 OR PLACEBO [Suspect]
     Active Substance: ITACITINIB
     Dosage: 100 MG, 1X/DAY
     Route: 048
     Dates: start: 20190211
  3. PREDNISONE. [Suspect]
     Active Substance: PREDNISONE
     Indication: ACUTE GRAFT VERSUS HOST DISEASE
     Dosage: 30 MG, 2X/DAY
     Route: 048
     Dates: start: 20190215
  4. ENOXAPARIN [Concomitant]
     Active Substance: ENOXAPARIN
     Dosage: UNK
     Dates: start: 20190130

REACTIONS (4)
  - Ecchymosis [Recovering/Resolving]
  - Confusional state [Recovering/Resolving]
  - Anaemia [Recovered/Resolved]
  - Mobility decreased [Recovering/Resolving]

NARRATIVE: CASE EVENT DATE: 20190219
